FAERS Safety Report 9106053 (Version 1)
Quarter: 2013Q1

REPORT INFORMATION
  Report Type: Report from Study
  Country: US (occurrence: US)
  Receive Date: 20130220
  Receipt Date: 20130220
  Transmission Date: 20140127
  Serious: Yes (Other)
  Sender: FDA-Public Use
  Company Number: US-ABBOTT-13P-163-1051076-00

PATIENT
  Sex: Female
  Weight: 86 kg

DRUGS (9)
  1. HUMIRA (ABBOTT) [Suspect]
     Indication: RHEUMATOID ARTHRITIS
     Route: 058
     Dates: start: 2009, end: 2011
  2. HUMIRA (ABBOTT) [Suspect]
     Route: 058
     Dates: start: 2011
  3. CYMBALTA [Concomitant]
     Indication: DEPRESSION
  4. LASIX [Concomitant]
     Indication: PRODUCT USED FOR UNKNOWN INDICATION
  5. METHOTREXATE [Concomitant]
     Indication: RHEUMATOID ARTHRITIS
     Dates: end: 2011
  6. METHOTREXATE [Concomitant]
     Dates: start: 2011
  7. PERCOCET [Concomitant]
     Indication: RHEUMATOID ARTHRITIS
  8. SYNTHROID [Concomitant]
     Indication: HYPOTHYROIDISM
  9. VITAMIN D [Concomitant]
     Indication: PRODUCT USED FOR UNKNOWN INDICATION

REACTIONS (5)
  - Renal failure [Not Recovered/Not Resolved]
  - Influenza [Recovered/Resolved]
  - Asthma [Not Recovered/Not Resolved]
  - Gastric ulcer [Not Recovered/Not Resolved]
  - Glomerular filtration rate decreased [Not Recovered/Not Resolved]
